FAERS Safety Report 16628112 (Version 2)
Quarter: 2019Q4

REPORT INFORMATION
  Report Type: Report from Study
  Country: DE (occurrence: DE)
  Receive Date: 20190724
  Receipt Date: 20191017
  Transmission Date: 20200122
  Serious: Yes (Hospitalization, Other)
  Sender: FDA-Public Use
  Company Number: DE-BIOMARINP-000325

PATIENT

DRUGS (1)
  1. NAGLAZYME [Suspect]
     Active Substance: GALSULFASE
     Indication: MUCOPOLYSACCHARIDOSIS VI
     Dosage: 1MG/KG,QW
     Route: 042
     Dates: start: 20081117

REACTIONS (5)
  - Pain [Recovered/Resolved]
  - Cervical spinal stenosis [Recovered/Resolved]
  - Paresis [Recovered/Resolved]
  - Pyramidal tract syndrome [Recovered/Resolved]
  - Somatosensory evoked potentials abnormal [Recovered/Resolved]

NARRATIVE: CASE EVENT DATE: 20091217
